FAERS Safety Report 10447809 (Version 1)
Quarter: 2014Q3

REPORT INFORMATION
  Report Type: Spontaneous
  Country: JP (occurrence: JP)
  Receive Date: 20140911
  Receipt Date: 20140911
  Transmission Date: 20150326
  Serious: Yes (Death)
  Sender: FDA-Public Use
  Company Number: PHHY2009JP072650

PATIENT
  Age: 71 Year
  Sex: Female

DRUGS (2)
  1. EXJADE [Suspect]
     Active Substance: DEFERASIROX
     Indication: BURKITT^S LYMPHOMA
     Dosage: UNK
     Dates: start: 20090701
  2. EXJADE [Suspect]
     Active Substance: DEFERASIROX
     Dosage: 125 UNK, UNK

REACTIONS (2)
  - Rash generalised [Unknown]
  - Burkitt^s lymphoma [Fatal]
